FAERS Safety Report 5619150-7 (Version None)
Quarter: 2008Q1

REPORT INFORMATION
  Report Type: 
  Country: None (occurrence: None)
  Receive Date: 20080205
  Receipt Date: 20080122
  Transmission Date: 20080703
  Serious: Yes (Other)
  Sender: FDA-Public Use
  Company Number: 230842J08USA

PATIENT
  Age: 37 Year
  Sex: Male
  Weight: 111.1313 kg

DRUGS (2)
  1. REBIF [Suspect]
     Indication: MULTIPLE SCLEROSIS
     Dosage: 44 MCG, 3 IN 1 WEEKS, SUBCUTANEOUS
     Route: 058
     Dates: start: 20070903
  2. PROVIGIL [Concomitant]

REACTIONS (3)
  - ANOREXIA [None]
  - COLITIS [None]
  - WEIGHT DECREASED [None]
